FAERS Safety Report 23289145 (Version 1)
Quarter: 2023Q4

REPORT INFORMATION
  Report Type: Spontaneous
  Country: CH (occurrence: CH)
  Receive Date: 20231212
  Receipt Date: 20231212
  Transmission Date: 20240109
  Serious: Yes (Death, Hospitalization, Other)
  Sender: FDA-Public Use
  Company Number: CH-AMGEN-CHESP2023218670

PATIENT

DRUGS (2)
  1. BEVACIZUMAB [Suspect]
     Active Substance: BEVACIZUMAB
     Indication: Glioblastoma
     Dosage: UNK
     Route: 065
  2. TEMOZOLOMIDE [Concomitant]
     Active Substance: TEMOZOLOMIDE
     Indication: Glioblastoma
     Dosage: UNK
     Route: 065

REACTIONS (8)
  - Death [Fatal]
  - Radiation sickness syndrome [Unknown]
  - Glioblastoma [Unknown]
  - Seizure [Unknown]
  - Mental status changes [Unknown]
  - Unevaluable event [Unknown]
  - Cerebral infarction [Unknown]
  - Headache [Unknown]
